FAERS Safety Report 16434999 (Version 2)
Quarter: 2019Q3

REPORT INFORMATION
  Report Type: Spontaneous
  Country: US (occurrence: US)
  Receive Date: 20190614
  Receipt Date: 20190717
  Transmission Date: 20191004
  Serious: No
  Sender: FDA-Public Use
  Company Number: US-JNJFOC-20190613688

PATIENT
  Age: 18 Year
  Sex: Female
  Weight: 68.1 kg

DRUGS (2)
  1. SIMPONI [Suspect]
     Active Substance: GOLIMUMAB
     Indication: PSORIATIC ARTHROPATHY
     Route: 058
     Dates: start: 20190511
  2. MELOXICAM. [Concomitant]
     Active Substance: MELOXICAM
     Indication: BONE PAIN
     Route: 048
     Dates: start: 2019

REACTIONS (3)
  - Hypersomnia [Recovered/Resolved]
  - Impaired driving ability [Unknown]
  - Fatigue [Not Recovered/Not Resolved]

NARRATIVE: CASE EVENT DATE: 20190511
